FAERS Safety Report 19963047 (Version 1)
Quarter: 2021Q4

REPORT INFORMATION
  Report Type: Spontaneous
  Country: US (occurrence: US)
  Receive Date: 20211015
  Receipt Date: 20211015
  Transmission Date: 20220303
  Serious: Yes (Life-Threatening, Hospitalization)
  Sender: FDA-Public Use
  Company Number: None

PATIENT
  Age: 71 Year
  Sex: Female
  Weight: 74.25 kg

DRUGS (19)
  1. LISINOPRIL [Suspect]
     Active Substance: LISINOPRIL
     Indication: Blood pressure measurement
     Dosage: ?          QUANTITY:90 TABLET(S);
     Route: 048
     Dates: start: 20210114, end: 20210622
  2. ASPIRIN [Concomitant]
     Active Substance: ASPIRIN
  3. DULOXETINE [Concomitant]
     Active Substance: DULOXETINE
  4. OMEPRAZOLE [Concomitant]
     Active Substance: OMEPRAZOLE
  5. LORATADINE [Concomitant]
     Active Substance: LORATADINE
  6. LORAZEPAM [Concomitant]
     Active Substance: LORAZEPAM
  7. PREDNISONE [Concomitant]
     Active Substance: PREDNISONE
  8. NP THYROID [Concomitant]
     Active Substance: LEVOTHYROXINE\LIOTHYRONINE
  9. ALBUTEROL SULFATE [Concomitant]
     Active Substance: ALBUTEROL SULFATE
  10. HFA INHALER AND NEBULIZER SOLUTION [Concomitant]
  11. FISH OIL [Concomitant]
     Active Substance: FISH OIL
  12. VITAMIN C [Concomitant]
     Active Substance: ASCORBIC ACID
  13. CALCIUM [Concomitant]
     Active Substance: CALCIUM
  14. MAGNESIUM [Concomitant]
     Active Substance: MAGNESIUM
  15. ZINC [Concomitant]
     Active Substance: ZINC
  16. CHONDROITIN SULFATE (BOVINE)\GLUCOSAMINE HYDROCHLORIDE [Concomitant]
     Active Substance: CHONDROITIN SULFATE (BOVINE)\GLUCOSAMINE HYDROCHLORIDE
  17. HERBALS\TURMERIC [Concomitant]
     Active Substance: HERBALS\TURMERIC
  18. COENZYME Q10 [Concomitant]
     Active Substance: DIETARY SUPPLEMENT\UBIDECARENONE
  19. VITAMIN D3 [Concomitant]
     Active Substance: CHOLECALCIFEROL

REACTIONS (1)
  - Angioedema [None]

NARRATIVE: CASE EVENT DATE: 20210622
